FAERS Safety Report 4504932-5 (Version None)
Quarter: 2004Q4

REPORT INFORMATION
  Report Type: 
  Country: None (occurrence: None)
  Receive Date: 20041020
  Receipt Date: 20040628
  Transmission Date: 20050328
  Serious: No
  Sender: FDA-Public Use
  Company Number: 2004-06-2218

PATIENT
  Age: 70 Year
  Sex: Male

DRUGS (1)
  1. CLARINEX [Suspect]
     Dosage: ORAL
     Route: 048

REACTIONS (2)
  - DIZZINESS [None]
  - MIGRAINE WITH AURA [None]
